FAERS Safety Report 16960284 (Version 4)
Quarter: 2020Q2

REPORT INFORMATION
  Report Type: Spontaneous
  Country: US (occurrence: US)
  Receive Date: 20191025
  Receipt Date: 20200617
  Transmission Date: 20200713
  Serious: No
  Sender: FDA-Public Use
  Company Number: US-PFIZER INC-2019458738

PATIENT
  Age: 66 Year
  Sex: Female

DRUGS (7)
  1. SOMAVERT [Suspect]
     Active Substance: PEGVISOMANT
     Dosage: UNK (DECREASING DOSING FREQUENCY)
  2. SOMAVERT [Suspect]
     Active Substance: PEGVISOMANT
     Indication: ACROMEGALY
     Dosage: UNK
     Dates: start: 201904
  3. SOMAVERT [Suspect]
     Active Substance: PEGVISOMANT
     Dosage: UNK(2X 1 WEEK)
     Dates: start: 201907, end: 201910
  4. SANDOSTATIN LAR DEPOT [Concomitant]
     Active Substance: OCTREOTIDE ACETATE
     Indication: ACROMEGALY
     Dosage: 30 MG, MONTHLY(30 MG IM Q (EVERY) 4 WEEKS)
     Route: 030
  5. SOMAVERT [Suspect]
     Active Substance: PEGVISOMANT
     Dosage: 10 MG, 1X/DAY
     Route: 058
     Dates: start: 201903, end: 201907
  6. SOMAVERT [Suspect]
     Active Substance: PEGVISOMANT
     Dosage: 10 MG (3 TIMES A WEEK)
     Route: 058
     Dates: start: 201904
  7. SOMAVERT [Suspect]
     Active Substance: PEGVISOMANT
     Dosage: 10 MG (3 TIMES A WEEK)
     Dates: start: 201910

REACTIONS (4)
  - Visual pathway disorder [Unknown]
  - Insulin-like growth factor increased [Unknown]
  - Off label use [Unknown]
  - Lipohypertrophy [Not Recovered/Not Resolved]

NARRATIVE: CASE EVENT DATE: 201904
